FAERS Safety Report 7913049-9 (Version None)
Quarter: 2011Q4

REPORT INFORMATION
  Report Type: 
  Country: None (occurrence: None)
  Receive Date: 20111114
  Receipt Date: 20111101
  Transmission Date: 20120403
  Serious: Yes (Hospitalization)
  Sender: FDA-Public Use
  Company Number: US-BAYER-2011-059766

PATIENT
  Age: 30 Year
  Sex: Female

DRUGS (4)
  1. ZYRTEC [Concomitant]
     Dosage: UNK UNK, PRN
     Route: 048
  2. ASPIRIN [Concomitant]
     Dosage: UNK UNK, PRN
     Route: 048
  3. BENADRYL [Concomitant]
     Dosage: UNK UNK, PRN
     Route: 048
  4. YAZ [Suspect]
     Indication: CONTRACEPTION
     Dosage: UNK
     Dates: start: 20080601, end: 20090301

REACTIONS (3)
  - DEEP VEIN THROMBOSIS [None]
  - PAIN [None]
  - PULMONARY EMBOLISM [None]
